FAERS Safety Report 14174751 (Version 1)
Quarter: 2017Q4

REPORT INFORMATION
  Report Type: Spontaneous
  Country: AT (occurrence: AT)
  Receive Date: 20171109
  Receipt Date: 20171109
  Transmission Date: 20180321
  Serious: Yes (Other)
  Sender: FDA-Public Use
  Company Number: AT-PFIZER INC-2017478390

PATIENT
  Age: 56 Year
  Sex: Male

DRUGS (4)
  1. LISINOPRIL 10 MG [Concomitant]
     Active Substance: LISINOPRIL
     Indication: BLOOD PRESSURE INCREASED
     Dosage: 10 MG, ONCE DAILY (0-0-1)
     Dates: start: 20170830
  2. THROMBO ASS 100MG [Concomitant]
     Dosage: 100 MG, ONCE DAILY
     Dates: start: 20170830
  3. SORTIS [Suspect]
     Active Substance: ATORVASTATIN
     Indication: BLOOD CHOLESTEROL
     Dosage: 80 MG, DAILY
     Dates: start: 20170830, end: 20170927
  4. LISINOPRIL HCT 20MG [Concomitant]
     Indication: BLOOD PRESSURE INCREASED
     Dosage: 20 MG, ONCE DAILY (1-0-0)

REACTIONS (3)
  - Hepatic enzyme increased [Unknown]
  - Accident [Unknown]
  - Tendon rupture [Not Recovered/Not Resolved]

NARRATIVE: CASE EVENT DATE: 20170922
